FAERS Safety Report 5028432-1 (Version None)
Quarter: 2006Q2

REPORT INFORMATION
  Report Type: 
  Country: None (occurrence: None)
  Receive Date: 20060617
  Receipt Date: 20060309
  Transmission Date: 20061013
  Serious: Yes (Hospitalization)
  Sender: FDA-Public Use
  Company Number: US-GLAXOSMITHKLINE-A0596830A

PATIENT
  Age: 15 Year
  Sex: Male
  Weight: 71.4 kg

DRUGS (3)
  1. PAXIL [Suspect]
     Indication: DEPRESSION
     Dosage: 40MG PER DAY
     Route: 048
     Dates: start: 20020808, end: 20021211
  2. NALOXONE [Concomitant]
  3. PROMETHAZINE [Concomitant]

REACTIONS (17)
  - CAUDA EQUINA SYNDROME [None]
  - CONSTIPATION [None]
  - DECREASED APPETITE [None]
  - FAECAL INCONTINENCE [None]
  - FAECALOMA [None]
  - FOOT FRACTURE [None]
  - HEADACHE [None]
  - NAUSEA [None]
  - NEUROGENIC BLADDER [None]
  - NEUROGENIC BOWEL [None]
  - PARAPLEGIA [None]
  - PSYCHOMOTOR HYPERACTIVITY [None]
  - SPINAL CORD INJURY [None]
  - SUICIDE ATTEMPT [None]
  - URINARY INCONTINENCE [None]
  - VOMITING [None]
  - WRIST FRACTURE [None]
